FAERS Safety Report 7732322-0 (Version None)
Quarter: 2011Q3

REPORT INFORMATION
  Report Type: 
  Country: None (occurrence: None)
  Receive Date: 20110906
  Receipt Date: 20110822
  Transmission Date: 20111222
  Serious: Yes (Death)
  Sender: FDA-Public Use
  Company Number: DE-WATSON-2011-13929

PATIENT
  Age: 7 Month
  Sex: Male

DRUGS (1)
  1. PROPRANOLOL [Suspect]
     Indication: CARDIAC FAILURE
     Dosage: 0.3 MG/KG, DAILY PER G-TUBE
     Route: 050

REACTIONS (6)
  - INFLAMMATORY MARKER INCREASED [None]
  - MULTI-ORGAN FAILURE [None]
  - ALANINE AMINOTRANSFERASE INCREASED [None]
  - LYMPHOHISTIOCYTOSIS [None]
  - SYSTEMIC INFLAMMATORY RESPONSE SYNDROME [None]
  - BLOOD LACTATE DEHYDROGENASE INCREASED [None]
